FAERS Safety Report 14019756 (Version 4)
Quarter: 2019Q3

REPORT INFORMATION
  Report Type: Spontaneous
  Country: ZA (occurrence: ZA)
  Receive Date: 20170928
  Receipt Date: 20190920
  Transmission Date: 20191004
  Serious: Yes (Other)
  Sender: FDA-Public Use
  Company Number: ZA-PFIZER INC-2017413855

PATIENT
  Age: 54 Year
  Sex: Male
  Weight: 85 kg

DRUGS (6)
  1. ENDOXAN [CYCLOPHOSPHAMIDE] [Concomitant]
     Active Substance: CYCLOPHOSPHAMIDE
     Dosage: 100 UG, DAILY
     Dates: start: 2003, end: 2004
  2. METHOTREXATE. [Suspect]
     Active Substance: METHOTREXATE
     Dosage: 20 UG, WEEKLY
     Dates: start: 2001
  3. CHLOROQUINE. [Suspect]
     Active Substance: CHLOROQUINE
     Dosage: 200 UG, DAILY
     Dates: start: 2001, end: 2010
  4. ENBREL [Concomitant]
     Active Substance: ETANERCEPT
     Dosage: UNK
     Dates: start: 201302
  5. METHOTREXATE. [Suspect]
     Active Substance: METHOTREXATE
     Dosage: 10 MG, UNK
  6. ARAVA [Concomitant]
     Active Substance: LEFLUNOMIDE
     Dosage: 20 UG, DAILY
     Dates: start: 2004

REACTIONS (10)
  - Marfan^s syndrome [Unknown]
  - Maculopathy [Unknown]
  - Hypothyroidism [Unknown]
  - Chronic kidney disease [Unknown]
  - Underdose [Unknown]
  - Drug ineffective [Unknown]
  - Hypertension [Unknown]
  - Osteoporotic fracture [Unknown]
  - Gastrooesophageal reflux disease [Unknown]
  - Sinusitis [Unknown]

NARRATIVE: CASE EVENT DATE: 2001
